FAERS Safety Report 17171720 (Version 1)
Quarter: 2019Q4

REPORT INFORMATION
  Report Type: Spontaneous
  Country: US (occurrence: US)
  Receive Date: 20191218
  Receipt Date: 20191218
  Transmission Date: 20200122
  Serious: Yes (Hospitalization, Other)
  Sender: FDA-Public Use
  Company Number: US-ASTRAZENECA-2019SF79694

PATIENT
  Age: 56 Year
  Sex: Female

DRUGS (1)
  1. FASLODEX [Suspect]
     Active Substance: FULVESTRANT
     Dosage: UNKNOWN
     Route: 030

REACTIONS (6)
  - Confusional state [Unknown]
  - Hypoaesthesia [Unknown]
  - Flushing [Unknown]
  - Paraesthesia [Unknown]
  - Drug hypersensitivity [Unknown]
  - Pyrexia [Unknown]
